FAERS Safety Report 9100232 (Version 1)
Quarter: 2013Q1

REPORT INFORMATION
  Report Type: Spontaneous
  Country: US (occurrence: US)
  Receive Date: 20130214
  Receipt Date: 20130214
  Transmission Date: 20140127
  Serious: Yes (Other)
  Sender: FDA-Public Use
  Company Number: US-AMGEN-USASP2013009314

PATIENT
  Age: 73 Year
  Sex: Male

DRUGS (2)
  1. XGEVA [Suspect]
     Indication: PRODUCT USED FOR UNKNOWN INDICATION
  2. XTANDI [Concomitant]
     Dosage: UNK UNK, QD
     Route: 048

REACTIONS (2)
  - Neoplasm [Unknown]
  - Nausea [Unknown]
